FAERS Safety Report 5530731-1 (Version None)
Quarter: 2007Q4

REPORT INFORMATION
  Report Type: 
  Country: None (occurrence: None)
  Receive Date: 20071130
  Receipt Date: 20070601
  Transmission Date: 20080405
  Serious: No
  Sender: FDA-Public Use
  Company Number: US-BRISTOL-MYERS SQUIBB COMPANY-13801527

PATIENT
  Sex: Male

DRUGS (1)
  1. KENALOG [Suspect]

REACTIONS (2)
  - INJECTION SITE ATROPHY [None]
  - URTICARIA [None]
